FAERS Safety Report 4927880-5 (Version None)
Quarter: 2006Q1

REPORT INFORMATION
  Report Type: 
  Country: None (occurrence: None)
  Receive Date: 20060228
  Receipt Date: 20060119
  Transmission Date: 20060701
  Serious: Yes (Congenital Anomaly)
  Sender: FDA-Public Use
  Company Number: IE-GLAXOSMITHKLINE-B0407546A

PATIENT
  Age: 12 Week
  Sex: Male

DRUGS (4)
  1. SERETIDE [Suspect]
     Indication: ASTHMA
  2. SALBUTAMOL [Suspect]
     Indication: ASTHMA
  3. DIANETTE [Suspect]
     Indication: ASTHMA
  4. GALFER [Concomitant]
     Route: 065

REACTIONS (3)
  - CLEFT LIP [None]
  - CLEFT PALATE [None]
  - DRUG EXPOSURE DURING PREGNANCY [None]
